FAERS Safety Report 14114585 (Version 2)
Quarter: 2018Q1

REPORT INFORMATION
  Report Type: Report from Study
  Country: US (occurrence: US)
  Receive Date: 20171023
  Receipt Date: 20180213
  Transmission Date: 20180508
  Serious: Yes (Other)
  Sender: FDA-Public Use
  Company Number: PHEH2017US033755

PATIENT
  Age: 63 Year
  Sex: Female

DRUGS (1)
  1. COSENTYX [Suspect]
     Active Substance: SECUKINUMAB
     Indication: PRODUCT USED FOR UNKNOWN INDICATION
     Dosage: 300 MG, QMO
     Route: 065
     Dates: start: 20171008

REACTIONS (5)
  - Skin haemorrhage [Not Recovered/Not Resolved]
  - Cerebrovascular accident [Unknown]
  - Rash [Not Recovered/Not Resolved]
  - Visual impairment [Unknown]
  - Rash macular [Not Recovered/Not Resolved]

NARRATIVE: CASE EVENT DATE: 20180109
